FAERS Safety Report 19095792 (Version 1)
Quarter: 2021Q2

REPORT INFORMATION
  Report Type: Spontaneous
  Country: US (occurrence: US)
  Receive Date: 20210406
  Receipt Date: 20210406
  Transmission Date: 20210717
  Serious: Yes (Hospitalization, Other)
  Sender: FDA-Public Use
  Company Number: US-LUPIN PHARMACEUTICALS INC.-2021-04269

PATIENT
  Age: 11 Month
  Sex: Female

DRUGS (5)
  1. TACROLIMUS. [Interacting]
     Active Substance: TACROLIMUS
     Dosage: 2 MILLIGRAM, BID
     Route: 065
     Dates: start: 202004, end: 202004
  2. TACROLIMUS. [Interacting]
     Active Substance: TACROLIMUS
     Indication: PROPHYLAXIS AGAINST GRAFT VERSUS HOST DISEASE
     Dosage: 1.2 MILLIGRAM, BID
     Route: 065
     Dates: start: 2020
  3. VORICONAZOLE. [Interacting]
     Active Substance: VORICONAZOLE
     Indication: PYREXIA
  4. TACROLIMUS. [Interacting]
     Active Substance: TACROLIMUS
     Dosage: 1.4 MILLIGRAM, BID
     Route: 065
     Dates: start: 2020
  5. VORICONAZOLE. [Suspect]
     Active Substance: VORICONAZOLE
     Indication: PULMONARY MASS
     Dosage: UNK
     Route: 065
     Dates: start: 2020

REACTIONS (2)
  - Drug interaction [Unknown]
  - Septic shock [Recovering/Resolving]

NARRATIVE: CASE EVENT DATE: 202004
